FAERS Safety Report 10641891 (Version 3)
Quarter: 2015Q1

REPORT INFORMATION
  Report Type: Spontaneous
  Country: FR (occurrence: FR)
  Receive Date: 20141209
  Receipt Date: 20150217
  Transmission Date: 20150720
  Serious: Yes (Life-Threatening, Hospitalization, Other)
  Sender: FDA-Public Use
  Company Number: FR-GILEAD-2014-0125528

PATIENT
  Age: 80 Year
  Sex: Female
  Weight: 82 kg

DRUGS (4)
  1. LEVOTHYROX [Concomitant]
     Active Substance: LEVOTHYROXINE
  2. OLYSIO [Suspect]
     Active Substance: SIMEPREVIR
     Indication: HEPATITIS C
     Dosage: 150 MG, UNK
     Route: 048
     Dates: start: 20140823, end: 20141114
  3. ORBENINE [Suspect]
     Active Substance: CLOXACILLIN SODIUM
     Indication: SKIN INFECTION
     Dosage: 2 G, QD
     Route: 048
     Dates: start: 20141023, end: 20141025
  4. SOVALDI [Suspect]
     Active Substance: SOFOSBUVIR
     Indication: HEPATITIS C
     Dosage: 400 MG, UNK
     Route: 048
     Dates: start: 20140823, end: 20141114

REACTIONS (1)
  - Hepatitis acute [Recovering/Resolving]

NARRATIVE: CASE EVENT DATE: 20141113
